FAERS Safety Report 14083357 (Version 1)
Quarter: 2017Q4

REPORT INFORMATION
  Report Type: Report from Study
  Country: US (occurrence: US)
  Receive Date: 20171012
  Receipt Date: 20171012
  Transmission Date: 20180321
  Serious: Yes (Other)
  Sender: FDA-Public Use
  Company Number: US-CIPLA (EU) LIMITED-STD201411-003632

PATIENT

DRUGS (15)
  1. IRINOTECAN [Suspect]
     Active Substance: IRINOTECAN
     Indication: NEUROBLASTOMA RECURRENT
     Dosage: 50 MG/M2, DAYS 1 TO 5, DURING COURSE 3 AND 4
     Route: 042
  2. IL-2 [Suspect]
     Active Substance: ALDESLEUKIN
     Indication: IMMUNOCHEMOTHERAPY
     Dosage: 1 MILLION UNITS/M2, S.Q EVERY OTHER DAY FOR 6 DOSES
     Route: 058
  3. CARBOPLATIN. [Suspect]
     Active Substance: CARBOPLATIN
     Indication: NEUROBLASTOMA RECURRENT
     Dosage: AT A DOSE OF AUC-GUIDED OF 8, DAY 1, DURING COURSE 5 AND 6
     Route: 042
  4. CYCLOPHOSPHAMIDE. [Suspect]
     Active Substance: CYCLOPHOSPHAMIDE
     Dosage: 400 MG/M2, DAYS 1 TO 5, DURING COURSE 1 AND 2
     Route: 042
  5. DIPHENHYDRAMINE. [Concomitant]
     Active Substance: DIPHENHYDRAMINE
     Indication: PREMEDICATION
     Dosage: UNK
     Route: 065
  6. TOPOTECAN [Suspect]
     Active Substance: TOPOTECAN HYDROCHLORIDE
     Indication: NEUROBLASTOMA RECURRENT
     Dosage: UNK
     Route: 065
  7. CYCLOPHOSPHAMIDE. [Suspect]
     Active Substance: CYCLOPHOSPHAMIDE
     Indication: NEUROBLASTOMA RECURRENT
     Dosage: UNK
     Route: 065
  8. ETOPOSIDE. [Suspect]
     Active Substance: ETOPOSIDE
     Indication: NEUROBLASTOMA RECURRENT
     Dosage: 100 MG/M2, DAYS 1 TO 3, DURING COURSE 5 AND 6
     Route: 042
  9. DINUTUXIMAB [Suspect]
     Active Substance: DINUTUXIMAB
     Indication: NEUROBLASTOMA RECURRENT
     Dosage: UNK
     Route: 065
  10. HUMANIZED ANTI-GD2 MAB [Suspect]
     Active Substance: INVESTIGATIONAL PRODUCT
     Indication: NEUROBLASTOMA RECURRENT
     Dosage: 40 MG/M2, DAYS 2 TO 5, DURING COURSE 1 TO 6
     Route: 042
  11. GM-CSF [Suspect]
     Active Substance: GRANULOCYTE-MACROPHAGE COLONY-STIMULATING FACTOR
     Indication: IMMUNOCHEMOTHERAPY
     Dosage: 250 MCG/M2/DAY S.Q ON DAYS 7 AND DAY 8
     Route: 058
  12. TOPOTECAN [Suspect]
     Active Substance: TOPOTECAN HYDROCHLORIDE
     Dosage: 1.2 MG/M2, PER DAY, DAYS 1 TO 5, DURING COURSE 1 AND 2
     Route: 042
  13. TEMOZOLOMIDE. [Suspect]
     Active Substance: TEMOZOLOMIDE
     Indication: NEUROBLASTOMA RECURRENT
     Dosage: 150 MG/M2, DAYS 1 TO 5, DURING COURSE 3 AND 4
     Route: 048
  14. IFOSFAMIDE. [Suspect]
     Active Substance: IFOSFAMIDE
     Indication: NEUROBLASTOMA RECURRENT
     Dosage: 2 G/M2, DAYS 1 TO 3, DURING COURSE 5 AND 6
     Route: 042
  15. ACETAMINOPHEN. [Concomitant]
     Active Substance: ACETAMINOPHEN
     Indication: PREMEDICATION
     Dosage: UNK
     Route: 065

REACTIONS (2)
  - Disease progression [Unknown]
  - Bone marrow failure [Unknown]
